FAERS Safety Report 10514412 (Version 4)
Quarter: 2014Q4

REPORT INFORMATION
  Report Type: Spontaneous
  Country: US (occurrence: US)
  Receive Date: 20141013
  Receipt Date: 20141105
  Transmission Date: 20150528
  Serious: Yes (Other)
  Sender: FDA-Public Use
  Company Number: US-PFIZER INC-2014277603

PATIENT
  Age: 13 Year
  Sex: Male
  Weight: 37 kg

DRUGS (4)
  1. R-GENE [Suspect]
     Active Substance: ARGININE HYDROCHLORIDE
     Indication: SOMATOTROPIN STIMULATION TEST
     Dosage: 18 G, EVER30 MINUTES BASED ON WEIGHT
     Route: 042
     Dates: start: 20140929, end: 20140929
  2. STRATTERA [Concomitant]
     Active Substance: ATOMOXETINE HYDROCHLORIDE
     Dosage: 40 MG, DAILY
     Route: 048
  3. CLONIDINE. [Concomitant]
     Active Substance: CLONIDINE
     Indication: SOMATOTROPIN STIMULATION TEST
     Dosage: 0.1 MG, UNK
     Route: 048
     Dates: start: 20140929, end: 20140929
  4. VITAMIN D [Concomitant]
     Active Substance: CHOLECALCIFEROL
     Dosage: 5000 UNITS, DAILY
     Route: 048

REACTIONS (11)
  - Tongue discolouration [Recovered/Resolved]
  - Pallor [Recovered/Resolved]
  - Gait disturbance [Recovered/Resolved]
  - Malaise [Recovered/Resolved]
  - Hypersensitivity [Recovered/Resolved]
  - Nausea [Recovered/Resolved]
  - Pulse absent [Recovered/Resolved]
  - Retching [Recovered/Resolved]
  - Syncope [Recovered/Resolved]
  - Vomiting [Recovered/Resolved]
  - Wrong technique in drug usage process [Unknown]

NARRATIVE: CASE EVENT DATE: 20140929
